FAERS Safety Report 13077920 (Version 1)
Quarter: 2017Q1

REPORT INFORMATION
  Report Type: Report from Study
  Country: None (occurrence: CA)
  Receive Date: 20170102
  Receipt Date: 20170102
  Transmission Date: 20170428
  Serious: Yes (Other)
  Sender: FDA-Public Use
  Company Number: CA-ABBVIE-16K-028-1825789-00

PATIENT
  Age: 40 Year
  Sex: Female

DRUGS (3)
  1. OXYCONTIN INNER MORPHINE [Concomitant]
     Indication: CROHN^S DISEASE
     Route: 048
     Dates: end: 201603
  2. METHADONE [Concomitant]
     Active Substance: METHADONE HYDROCHLORIDE
     Indication: CROHN^S DISEASE
     Route: 048
     Dates: start: 201603
  3. HUMIRA [Suspect]
     Active Substance: ADALIMUMAB
     Indication: CROHN^S DISEASE
     Route: 058
     Dates: start: 20110510

REACTIONS (8)
  - Benign lymph node neoplasm [Unknown]
  - Drug effect decreased [Not Recovered/Not Resolved]
  - Arthralgia [Unknown]
  - Asthenia [Not Recovered/Not Resolved]
  - Lymphadenopathy [Not Recovered/Not Resolved]
  - Tongue disorder [Not Recovered/Not Resolved]
  - Weight increased [Not Recovered/Not Resolved]
  - Abdominal pain upper [Not Recovered/Not Resolved]

NARRATIVE: CASE EVENT DATE: 20161222
